FAERS Safety Report 25776331 (Version 1)
Quarter: 2025Q3

REPORT INFORMATION
  Report Type: Spontaneous
  Country: US (occurrence: US)
  Receive Date: 20250909
  Receipt Date: 20250909
  Transmission Date: 20251021
  Serious: No
  Sender: DOMPE FARMACEUTICI
  Company Number: US-FARMAPROD-202502-0556

PATIENT
  Sex: Female

DRUGS (9)
  1. OXERVATE [Suspect]
     Active Substance: CENEGERMIN-BKBJ
     Indication: Neurotrophic keratopathy
     Route: 047
     Dates: start: 20250210
  2. OXERVATE [Suspect]
     Active Substance: CENEGERMIN-BKBJ
  3. TRAZODONE HCL [Concomitant]
     Active Substance: TRAZODONE HYDROCHLORIDE
  4. ROSUVASTATIN CALCIUM [Concomitant]
     Active Substance: ROSUVASTATIN CALCIUM
  5. BENICAR [Concomitant]
     Active Substance: OLMESARTAN MEDOXOMIL
  6. METOPROLOL TARTRATE [Concomitant]
     Active Substance: METOPROLOL TARTRATE
  7. METFORMIN HYDROCHLORIDE [Concomitant]
     Active Substance: METFORMIN HYDROCHLORIDE
  8. GABAPENTIN [Concomitant]
     Active Substance: GABAPENTIN
  9. SYSTANE (HYPROMELLOSE 2910 (4000 MPA.S)) [Concomitant]
     Active Substance: HYPROMELLOSE 2910 (4000 MPA.S)

REACTIONS (2)
  - Ocular discomfort [Unknown]
  - Treatment noncompliance [Unknown]
